FAERS Safety Report 7674311-0 (Version None)
Quarter: 2011Q3

REPORT INFORMATION
  Report Type: 
  Country: None (occurrence: None)
  Receive Date: 20110810
  Receipt Date: 20110801
  Transmission Date: 20111222
  Serious: Yes (Life-Threatening)
  Sender: FDA-Public Use
  Company Number: FR-NOVOPROD-333010

PATIENT

DRUGS (5)
  1. LESCOL [Concomitant]
  2. PLAVIX [Concomitant]
  3. GLUCOPHAGE [Concomitant]
  4. REPAGLINIDE [Suspect]
     Indication: TYPE 2 DIABETES MELLITUS
     Dosage: 6 MG, QD (1 DF, 3 TIMES A DAY)
     Route: 058
  5. INDAPAMIDE [Concomitant]

REACTIONS (1)
  - BLADDER CANCER [None]
